FAERS Safety Report 9602297 (Version 1)
Quarter: 2013Q4

REPORT INFORMATION
  Report Type: Spontaneous
  Country: US (occurrence: US)
  Receive Date: 20131007
  Receipt Date: 20131007
  Transmission Date: 20140711
  Serious: Yes (Hospitalization)
  Sender: FDA-Public Use
  Company Number: US-SA-2013SA097814

PATIENT
  Age: 3 Year
  Sex: Male

DRUGS (1)
  1. AMBIEN [Suspect]
     Route: 065

REACTIONS (1)
  - Accidental exposure to product by child [Unknown]
